FAERS Safety Report 7570098-0 (Version None)
Quarter: 2011Q2

REPORT INFORMATION
  Report Type: 
  Country: None (occurrence: None)
  Receive Date: 20110624
  Receipt Date: 20110608
  Transmission Date: 20111010
  Serious: Yes (Death, Life-Threatening, Other)
  Sender: FDA-Public Use
  Company Number: DE-CELGENEUS-062-50794-11062357

PATIENT
  Age: 51 Year
  Sex: Male

DRUGS (10)
  1. VIDAZA [Suspect]
     Dosage: 100 MILLIGRAM/SQ. METER
     Route: 058
     Dates: start: 20100607
  2. DEXAMETHASONE [Concomitant]
     Route: 065
     Dates: start: 20110212, end: 20110216
  3. CYCLOPHOSPHAMIDE [Concomitant]
     Route: 065
     Dates: start: 20110212, end: 20110216
  4. DAUNORUBICIN HCL [Concomitant]
     Route: 065
     Dates: start: 20110217, end: 20110223
  5. CYCLOPHOSPHAMIDE [Concomitant]
     Route: 065
     Dates: start: 20110311, end: 20110312
  6. VINDESINE [Concomitant]
     Route: 065
     Dates: start: 20110217, end: 20110223
  7. NILOTINIB [Concomitant]
     Route: 065
     Dates: start: 20100501
  8. CYCLOPHOSPHAMIDE [Concomitant]
     Dates: start: 20110302
  9. NEURONTIN [Concomitant]
     Route: 065
     Dates: end: 20110302
  10. PEG-ASPARAGINASE [Concomitant]
     Route: 065
     Dates: start: 20110225

REACTIONS (4)
  - ACUTE LYMPHOCYTIC LEUKAEMIA [None]
  - PLEURAL EFFUSION [None]
  - PNEUMONIA PRIMARY ATYPICAL [None]
  - FEBRILE BONE MARROW APLASIA [None]
